FAERS Safety Report 8878463 (Version 1)
Quarter: 2012Q4

REPORT INFORMATION
  Report Type: 
  Country: US (occurrence: US)
  Receive Date: 20121025
  Receipt Date: 20121025
  Transmission Date: 20130627
  Serious: No
  Sender: FDA-Public Use
  Company Number: US-AMGEN-USASP2012022931

PATIENT
  Age: 38 Year
  Sex: Male
  Weight: 97.51 kg

DRUGS (3)
  1. ENBREL [Suspect]
     Indication: PSORIASIS
     Dosage: 50 mg, qwk
     Route: 058
  2. ZYRTEC [Concomitant]
     Dosage: 10 mg, UNK
     Route: 048
  3. AMLODIPINE [Concomitant]
     Dosage: 10 mg, UNK
     Route: 048

REACTIONS (1)
  - Therapeutic response decreased [Unknown]
